FAERS Safety Report 20028380 (Version 1)
Quarter: 2021Q4

REPORT INFORMATION
  Report Type: Spontaneous
  Country: US (occurrence: US)
  Receive Date: 20211103
  Receipt Date: 20211103
  Transmission Date: 20220304
  Serious: No
  Sender: FDA-Public Use
  Company Number: US-LUPIN PHARMACEUTICALS INC.-2021-21343

PATIENT
  Age: 3 Week
  Sex: Male

DRUGS (5)
  1. AZITHROMYCIN [Suspect]
     Active Substance: AZITHROMYCIN
     Indication: Babesiosis
     Dosage: 15 MILLIGRAM/KILOGRAM, QD
     Route: 048
  2. AZITHROMYCIN [Suspect]
     Active Substance: AZITHROMYCIN
     Dosage: 10 MILLIGRAM/KILOGRAM, QD (A 6-WEEK COURSE OF ORAL AZITHROMYCIN (10 MG/KG ON DAY 1, THEN 5 MG/KG ONC
     Route: 048
  3. AZITHROMYCIN [Suspect]
     Active Substance: AZITHROMYCIN
     Dosage: 5 MILLIGRAM/KILOGRAM, QD A 6-WEEK COURSE OF ORAL AZITHROMYCIN (10 MG/KG ON DAY 1, THEN 5 MG/KG ONCE
     Route: 048
  4. ATOVAQUONE [Suspect]
     Active Substance: ATOVAQUONE
     Indication: Babesiosis
     Dosage: 20 MILLIGRAM/KILOGRAM
     Route: 065
  5. CLINDAMYCIN [Suspect]
     Active Substance: CLINDAMYCIN
     Indication: Babesiosis
     Dosage: 10 MILLIGRAM/KILOGRAM, TID
     Route: 065

REACTIONS (1)
  - Off label use [Unknown]
